FAERS Safety Report 16414624 (Version 2)
Quarter: 2019Q2

REPORT INFORMATION
  Report Type: Report from Study
  Country: US (occurrence: US)
  Receive Date: 20190611
  Receipt Date: 20190614
  Transmission Date: 20190711
  Serious: Yes (Death, Other)
  Sender: FDA-Public Use
  Company Number: US-TAIHO ONCOLOGY  INC-EU-2019-01906

PATIENT
  Age: 65 Year
  Sex: Male

DRUGS (5)
  1. PREDNISONE. [Concomitant]
     Active Substance: PREDNISONE
     Indication: NEOPLASM MALIGNANT
     Route: 048
     Dates: start: 20190504
  2. LONSURF [Suspect]
     Active Substance: TIPIRACIL HYDROCHLORIDE\TRIFLURIDINE
     Indication: COLON CANCER
     Route: 048
     Dates: start: 20180119, end: 20190504
  3. ALPRAZOLAM. [Concomitant]
     Active Substance: ALPRAZOLAM
     Indication: ANXIETY
     Dosage: AT BEDTIME AS NEEDED
     Route: 048
     Dates: start: 20190504
  4. METHYLPHENIDATE HYDROCHLORIDE. [Concomitant]
     Active Substance: METHYLPHENIDATE HYDROCHLORIDE
     Indication: FATIGUE
     Dosage: TWO TIMES A DAY WITH LUNCH AND DINNER
     Route: 048
     Dates: start: 20190504
  5. COLACE [Concomitant]
     Active Substance: DOCUSATE SODIUM
     Indication: CONSTIPATION
     Route: 048
     Dates: start: 20190504

REACTIONS (15)
  - Back pain [Unknown]
  - Weight decreased [Unknown]
  - Asthenia [Unknown]
  - Dyspnoea [Unknown]
  - Hypotension [Unknown]
  - Decreased appetite [Unknown]
  - Malignant ascites [Unknown]
  - Biliary drainage [Unknown]
  - Musculoskeletal pain [Unknown]
  - Malnutrition [Unknown]
  - Malaise [Unknown]
  - Death [Fatal]
  - Fatigue [Unknown]
  - Gait disturbance [Unknown]
  - Diarrhoea [Unknown]

NARRATIVE: CASE EVENT DATE: 201901
